FAERS Safety Report 5789081-0 (Version None)
Quarter: 2008Q2

REPORT INFORMATION
  Report Type: 
  Country: None (occurrence: None)
  Receive Date: 20080626
  Receipt Date: 20080617
  Transmission Date: 20081010
  Serious: Yes (Hospitalization, Other)
  Sender: FDA-Public Use
  Company Number: US-JNJFOC-20080504024

PATIENT
  Sex: Female
  Weight: 58.06 kg

DRUGS (7)
  1. REMICADE [Suspect]
     Indication: RHEUMATOID ARTHRITIS
     Route: 042
  2. LEVAQUIN [Concomitant]
  3. ZOLOFT [Concomitant]
     Indication: DEPRESSION
  4. PRAVACHOL [Concomitant]
     Indication: BLOOD CHOLESTEROL INCREASED
  5. LISINOPRIL [Concomitant]
     Indication: BLOOD PRESSURE
     Dosage: DOSE: 10MG AM/ 20MG PM
  6. TOPROL-XL [Concomitant]
     Indication: BLOOD PRESSURE
  7. PLENDIL [Concomitant]

REACTIONS (3)
  - ACUTE CORONARY SYNDROME [None]
  - RASH [None]
  - RESPIRATORY TRACT INFECTION [None]
